FAERS Safety Report 5054586-7 (Version None)
Quarter: 2006Q2

REPORT INFORMATION
  Report Type: 
  Country: None (occurrence: None)
  Receive Date: 20060616
  Receipt Date: 20060509
  Transmission Date: 20061013
  Serious: No
  Sender: FDA-Public Use
  Company Number: 2006US000872

PATIENT
  Age: 65 Year
  Sex: Female

DRUGS (6)
  1. VESICARE [Suspect]
     Indication: HYPERTONIC BLADDER
     Dosage: 5 MG, ORAL
     Route: 048
  2. LEXAPRO [Concomitant]
  3. LAMICTAL [Concomitant]
  4. BLOOD PRESSURE MEDICATION [Concomitant]
  5. PREMARIN [Concomitant]
  6. CLONAZEPAM [Concomitant]

REACTIONS (1)
  - FUNGAL INFECTION [None]
